FAERS Safety Report 4840393-4 (Version None)
Quarter: 2005Q4

REPORT INFORMATION
  Report Type: 
  Country: None (occurrence: None)
  Receive Date: 20051019
  Receipt Date: 20050727
  Transmission Date: 20060501
  Serious: Yes (Other)
  Sender: FDA-Public Use
  Company Number: 2005US-00602

PATIENT
  Age: 18 Year
  Sex: Male

DRUGS (1)
  1. ISOTRETINOIN [Suspect]
     Dosage: 40 MG, ORAL
     Route: 048
     Dates: start: 20041101, end: 20050418

REACTIONS (3)
  - AGGRESSION [None]
  - HYPOGLYCAEMIA [None]
  - LIVER FUNCTION TEST ABNORMAL [None]
